FAERS Safety Report 18039500 (Version 1)
Quarter: 2020Q3

REPORT INFORMATION
  Report Type: Spontaneous
  Country: CA (occurrence: CA)
  Receive Date: 20200717
  Receipt Date: 20200717
  Transmission Date: 20201103
  Serious: Yes (Life-Threatening, Hospitalization)
  Sender: FDA-Public Use
  Company Number: CA-B.I. PHARMACEUTICALS,INC./RIDGEFIELD-2020-BI-035891

PATIENT
  Age: 65 Year
  Sex: Male
  Weight: 71.21 kg

DRUGS (1)
  1. PERSANTINE [Suspect]
     Active Substance: DIPYRIDAMOLE
     Indication: CARDIAC STRESS TEST
     Dosage: DOSAGE FORM: LIQUID INTRAVENOUS
     Route: 042

REACTIONS (4)
  - Blood pressure decreased [Unknown]
  - Cardiac arrest [Unknown]
  - Syncope [Unknown]
  - Heart rate decreased [Unknown]
